FAERS Safety Report 8291571-6 (Version None)
Quarter: 2012Q2

REPORT INFORMATION
  Report Type: 
  Country: None (occurrence: None)
  Receive Date: 20120417
  Receipt Date: 20120405
  Transmission Date: 20120825
  Serious: Yes (Other)
  Sender: FDA-Public Use
  Company Number: KR-ELI_LILLY_AND_COMPANY-KR201204001982

PATIENT
  Age: 48 Year
  Sex: Female

DRUGS (1)
  1. HUMALOG MIX 50/50 [Suspect]
     Indication: TYPE 2 DIABETES MELLITUS
     Dosage: 24 U, TID
     Route: 058
     Dates: start: 20111201

REACTIONS (2)
  - OLIGURIA [None]
  - HYPERPROLACTINAEMIA [None]
